FAERS Safety Report 6349231-4 (Version None)
Quarter: 2009Q3

REPORT INFORMATION
  Report Type: 
  Country: None (occurrence: None)
  Receive Date: 20090911
  Receipt Date: 20090902
  Transmission Date: 20100115
  Serious: Yes (Hospitalization, Congenital Anomaly)
  Sender: FDA-Public Use
  Company Number: A0680882A

PATIENT
  Sex: Female
  Weight: 3.8 kg

DRUGS (4)
  1. PAXIL [Suspect]
     Indication: STRESS
     Dosage: 20MG PER DAY
     Dates: start: 19951001, end: 19961201
  2. VITAMIN TAB [Concomitant]
  3. GUIATEX LA [Concomitant]
     Dates: start: 19951201
  4. AMOXICILLIN [Concomitant]
     Dates: start: 19951201

REACTIONS (6)
  - CLEFT PALATE [None]
  - DRUG EXPOSURE DURING PREGNANCY [None]
  - MICROGNATHIA [None]
  - PIERRE ROBIN SYNDROME [None]
  - TOOTH HYPOPLASIA [None]
  - VOCAL CORD DISORDER [None]
